FAERS Safety Report 22017711 (Version 2)
Quarter: 2023Q1

REPORT INFORMATION
  Report Type: Report from Study
  Country: DE (occurrence: None)
  Receive Date: 20230221
  Receipt Date: 20230309
  Transmission Date: 20230417
  Serious: Yes (Hospitalization)
  Sender: FDA-Public Use
  Company Number: DE-ROCHE-3288267

PATIENT
  Age: 76 Year
  Sex: Male
  Weight: 53 kg

DRUGS (3)
  1. ATEZOLIZUMAB [Suspect]
     Active Substance: ATEZOLIZUMAB
     Indication: Colorectal cancer
     Dosage: DATE OF LAST ADMINISTRATION: 08/FEB/2023
     Route: 041
     Dates: start: 20221014
  2. UNSPECIFIED INGREDIENT [Suspect]
     Active Substance: UNSPECIFIED INGREDIENT
     Indication: Colorectal cancer
     Dosage: ONE INITIAL DOSE OF IMM-101 INTRADERMALLY AT 1.0 MG 14 +- 2 DAYS BEFORE START OF ATEZOLIZUMAB TREATM
     Route: 023
     Dates: start: 20221014
  3. NOVALGIN (METAMIZOLE SODIUM) [Concomitant]
     Active Substance: METAMIZOLE SODIUM
     Dates: start: 20220803

REACTIONS (1)
  - Keratitis [Recovered/Resolved]

NARRATIVE: CASE EVENT DATE: 20230110
